FAERS Safety Report 25609836 (Version 1)
Quarter: 2025Q3

REPORT INFORMATION
  Report Type: Report from Study
  Country: US (occurrence: US)
  Receive Date: 20250728
  Receipt Date: 20250728
  Transmission Date: 20251020
  Serious: Yes (Hospitalization, Other)
  Sender: JOHNSON AND JOHNSON
  Company Number: US-JNJFOC-20250725145

PATIENT
  Sex: Male

DRUGS (1)
  1. IMAAVY [Suspect]
     Active Substance: NIPOCALIMAB-AAHU
     Indication: Product used for unknown indication
     Route: 065

REACTIONS (2)
  - Pulmonary embolism [Unknown]
  - Myasthenia gravis [Unknown]
